FAERS Safety Report 5557907-1 (Version None)
Quarter: 2007Q4

REPORT INFORMATION
  Report Type: 
  Country: None (occurrence: None)
  Receive Date: 20071214
  Receipt Date: 20071207
  Transmission Date: 20080405
  Serious: Yes (Death)
  Sender: FDA-Public Use
  Company Number: CA-ELI_LILLY_AND_COMPANY-CA200712001892

PATIENT
  Sex: Male

DRUGS (1)
  1. XIGRIS [Suspect]
     Dosage: 20 MG, OTHER
     Route: 042
     Dates: start: 20071101

REACTIONS (1)
  - SEPTIC SHOCK [None]
